FAERS Safety Report 5568882-8 (Version None)
Quarter: 2007Q4

REPORT INFORMATION
  Report Type: 
  Country: None (occurrence: None)
  Receive Date: 20071220
  Receipt Date: 20070226
  Transmission Date: 20080405
  Serious: No
  Sender: FDA-Public Use
  Company Number: A0640968A

PATIENT
  Sex: Male

DRUGS (1)
  1. AVODART [Suspect]
     Indication: BENIGN PROSTATIC HYPERPLASIA
     Dosage: .5TAB UNKNOWN
     Route: 048

REACTIONS (1)
  - PROSTATE INDURATION [None]
